FAERS Safety Report 26119092 (Version 1)
Quarter: 2025Q4

REPORT INFORMATION
  Report Type: Spontaneous
  Country: PH (occurrence: PH)
  Receive Date: 20251204
  Receipt Date: 20251204
  Transmission Date: 20260118
  Serious: Yes (Other)
  Sender: MACLEODS
  Company Number: PH-MLMSERVICE-20251114-PI713299-00091-1

PATIENT

DRUGS (1)
  1. CELECOXIB [Suspect]
     Active Substance: CELECOXIB
     Indication: Tooth extraction
     Route: 065

REACTIONS (1)
  - Drug-induced liver injury [Recovered/Resolved]
